FAERS Safety Report 8034595-6 (Version None)
Quarter: 2012Q1

REPORT INFORMATION
  Report Type: 
  Country: None (occurrence: None)
  Receive Date: 20120110
  Receipt Date: 20120104
  Transmission Date: 20120608
  Serious: Yes (Hospitalization)
  Sender: FDA-Public Use
  Company Number: US-ABBOTT-12P-163-0889619-00

PATIENT
  Age: 16 Year
  Sex: Male

DRUGS (1)
  1. HUMIRA [Suspect]
     Indication: CROHN'S DISEASE
     Dosage: 160MG LOADING DOSE
     Route: 058
     Dates: start: 20111228

REACTIONS (5)
  - ABDOMINAL PAIN [None]
  - HYPOPHAGIA [None]
  - FUNCTIONAL GASTROINTESTINAL DISORDER [None]
  - VOMITING [None]
  - CONSTIPATION [None]
